FAERS Safety Report 7665828 (Version 11)
Quarter: 2022Q1

REPORT INFORMATION
  Report Type: Spontaneous
  Country: DE (occurrence: DE)
  Receive Date: 20101112
  Receipt Date: 20220131
  Transmission Date: 20220424
  Serious: Yes (Hospitalization, Other)
  Sender: FDA-Public Use
  Company Number: DE-JNJFOC-20101000077

PATIENT
  Age: 44 Year
  Sex: Female
  Weight: 58 kg

DRUGS (6)
  1. DARUNAVIR [Suspect]
     Active Substance: DARUNAVIR
     Indication: HIV infection
     Route: 048
     Dates: start: 20081129
  2. ISENTRESS [Suspect]
     Active Substance: RALTEGRAVIR POTASSIUM
     Indication: HIV infection
     Route: 048
     Dates: start: 20081129
  3. NORVIR [Suspect]
     Active Substance: RITONAVIR
     Indication: HIV infection
     Route: 048
     Dates: start: 20081129
  4. TRIZIVIR [Suspect]
     Active Substance: ABACAVIR SULFATE\LAMIVUDINE\ZIDOVUDINE
     Indication: HIV infection
     Dosage: DOSE 300-150-300, STRENGTH: 300-150-300 MILLIGRAM
     Route: 048
     Dates: start: 20080829
  5. TRIZIVIR [Suspect]
     Active Substance: ABACAVIR SULFATE\LAMIVUDINE\ZIDOVUDINE
     Route: 048
     Dates: start: 20081129
  6. VIREAD [Suspect]
     Active Substance: TENOFOVIR DISOPROXIL FUMARATE
     Indication: HIV infection
     Dosage: 1 (TRIMESTER)
     Route: 048
     Dates: start: 20081129

REACTIONS (4)
  - Caesarean section [Unknown]
  - Premature delivery [Recovered/Resolved]
  - Polyhydramnios [Unknown]
  - Exposure during pregnancy [Recovered/Resolved]

NARRATIVE: CASE EVENT DATE: 20100810
